FAERS Safety Report 8381900-7 (Version None)
Quarter: 2012Q1

REPORT INFORMATION
  Report Type: 
  Country: None (occurrence: None)
  Receive Date: 20120323
  Receipt Date: 20110415
  Transmission Date: 20120608
  Serious: Yes (Other)
  Sender: FDA-Public Use
  Company Number: 163-21880-11042053

PATIENT
  Sex: Female

DRUGS (9)
  1. VORINOSTAT (VORINOSTAT) (UNKNOWN) [Suspect]
     Indication: MULTIPLE MYELOMA
     Dates: start: 20100701
  2. DEXAMETHASONE [Concomitant]
  3. VELCADE [Concomitant]
  4. PLATINOL [Concomitant]
  5. ADRIAMYCIN PFS [Concomitant]
  6. CYTOXAN [Concomitant]
  7. REVLIMID [Suspect]
     Indication: MULTIPLE MYELOMA
     Dosage: 25 MG, 1 IN 1 D, PO
     Route: 048
     Dates: start: 20100701
  8. REVLIMID [Suspect]
     Indication: MULTIPLE MYELOMA
     Dosage: 25 MG, 1 IN 1 D, PO
     Route: 048
     Dates: start: 20101005
  9. ETOPOSIDE [Concomitant]

REACTIONS (3)
  - PANCYTOPENIA [None]
  - NEOPLASM PROGRESSION [None]
  - MULTIPLE MYELOMA [None]
